FAERS Safety Report 21121040 (Version 3)
Quarter: 2022Q3

REPORT INFORMATION
  Report Type: Report from Study
  Country: IT (occurrence: IT)
  Receive Date: 20220722
  Receipt Date: 20220809
  Transmission Date: 20221027
  Serious: Yes (Hospitalization, Other)
  Sender: FDA-Public Use
  Company Number: IT-GILEAD-2022-0590444

PATIENT
  Age: 76 Year

DRUGS (1)
  1. SACITUZUMAB GOVITECAN [Suspect]
     Active Substance: SACITUZUMAB GOVITECAN
     Indication: Bladder cancer
     Dosage: UNK
     Route: 042
     Dates: start: 20220616, end: 20220623

REACTIONS (2)
  - Sepsis [Not Recovered/Not Resolved]
  - Febrile neutropenia [Not Recovered/Not Resolved]
